FAERS Safety Report 8793523 (Version 1)
Quarter: 2012Q4

REPORT INFORMATION
  Report Type: 
  Country: AR (occurrence: AR)
  Receive Date: 20120918
  Receipt Date: 20120918
  Transmission Date: 20130627
  Serious: Yes (Other)
  Sender: FDA-Public Use
  Company Number: PHHY2012AR080737

PATIENT
  Age: 61 Year
  Sex: Male

DRUGS (1)
  1. DIOVAN [Suspect]
     Indication: CARDIAC DISORDER
     Dosage: 160 mg, daily

REACTIONS (3)
  - Hypertension [Recovered/Resolved]
  - Vascular rupture [Recovered/Resolved]
  - Drug ineffective [Unknown]
